FAERS Safety Report 17215778 (Version 1)
Quarter: 2019Q4

REPORT INFORMATION
  Report Type: Report from Study
  Country: ES (occurrence: ES)
  Receive Date: 20191230
  Receipt Date: 20191230
  Transmission Date: 20200122
  Serious: Yes (Hospitalization)
  Sender: FDA-Public Use
  Company Number: ES-MYLANLABS-2019M1129368

PATIENT
  Age: 66 Year
  Sex: Female

DRUGS (6)
  1. IBUPROFEN. [Suspect]
     Active Substance: IBUPROFEN
     Indication: TOOTHACHE
     Dosage: 600 MILLIGRAM
     Route: 048
     Dates: start: 20190424, end: 20190429
  2. LOSARTAN AND HYDROCHLOROTHIAZIDE [Concomitant]
     Active Substance: HYDROCHLOROTHIAZIDE\LOSARTAN POTASSIUM
     Indication: HYPERTENSION
     Dosage: UNK
     Route: 048
  3. TINZAPARIN SODIUM [Interacting]
     Active Substance: TINZAPARIN SODIUM
     Indication: PRODUCT USED FOR UNKNOWN INDICATION
     Dosage: 14 MILLION INTERNATIONAL UNIT, QD
     Route: 058
     Dates: start: 20190320, end: 20190429
  4. FORTECORTIN                        /00016001/ [Interacting]
     Active Substance: DEXAMETHASONE
     Indication: GLIOBLASTOMA
     Dosage: 4 MILLIGRAM, QD
     Route: 048
     Dates: start: 201902
  5. PARACETAMOL [Concomitant]
     Active Substance: ACETAMINOPHEN
     Indication: PAIN
     Dosage: 3 GRAM, QD
     Route: 048
  6. AMOXICILINA                        /00249601/ [Concomitant]
     Active Substance: AMOXICILLIN
     Indication: TOOTH ABSCESS
     Dosage: 1.5 MILLIGRAM, QD
     Route: 048
     Dates: start: 20190425, end: 20190429

REACTIONS (2)
  - Upper gastrointestinal haemorrhage [Recovered/Resolved]
  - Drug interaction [Unknown]

NARRATIVE: CASE EVENT DATE: 20190430
